FAERS Safety Report 5239558-1 (Version None)
Quarter: 2007Q1

REPORT INFORMATION
  Report Type: 
  Country: None (occurrence: None)
  Receive Date: 20061208
  Receipt Date: 20060515
  Transmission Date: 20070707
  Serious: Yes (Other)
  Sender: FDA-Public Use
  Company Number: 2006UW09479

PATIENT
  Age: 55 Year
  Sex: Male
  Weight: 74.842 kg

DRUGS (2)
  1. CRESTOR [Suspect]
     Indication: BLOOD CHOLESTEROL INCREASED
  2. VITAMINS [Concomitant]

REACTIONS (1)
  - ERECTILE DYSFUNCTION [None]
